FAERS Safety Report 5989542-5 (Version None)
Quarter: 2008Q4

REPORT INFORMATION
  Report Type: 
  Country: None (occurrence: None)
  Receive Date: 20081208
  Receipt Date: 20081125
  Transmission Date: 20090506
  Serious: Yes (Other)
  Sender: FDA-Public Use
  Company Number: 232331K08USA

PATIENT
  Age: 43 Year
  Sex: Female
  Weight: 83 kg

DRUGS (6)
  1. REBIF [Suspect]
     Indication: MULTIPLE SCLEROSIS
     Dates: start: 20080721, end: 20080101
  2. CYMBALTA [Concomitant]
  3. DETROL [Concomitant]
  4. AMANTADINE HCL [Concomitant]
  5. ADDERALL (OBETROL) [Concomitant]
  6. BUPROPION HCL [Concomitant]

REACTIONS (4)
  - AORTIC DILATATION [None]
  - DIZZINESS [None]
  - GASTROOESOPHAGEAL REFLUX DISEASE [None]
  - PERICARDIAL EFFUSION [None]
